FAERS Safety Report 5393603-1 (Version None)
Quarter: 2007Q3

REPORT INFORMATION
  Report Type: 
  Country: None (occurrence: None)
  Receive Date: 20070723
  Receipt Date: 20061003
  Transmission Date: 20080115
  Serious: No
  Sender: FDA-Public Use
  Company Number: A0620881A

PATIENT
  Age: 62 Year
  Sex: Male
  Weight: 122.7 kg

DRUGS (3)
  1. AVANDIA [Suspect]
     Dosage: 4MG PER DAY
     Route: 048
  2. TOPROL-XL [Concomitant]
  3. ZOCOR [Concomitant]

REACTIONS (1)
  - RASH [None]
